FAERS Safety Report 4909608-8 (Version None)
Quarter: 2006Q1

REPORT INFORMATION
  Report Type: 
  Country: None (occurrence: None)
  Receive Date: 20060213
  Receipt Date: 20051003
  Transmission Date: 20060701
  Serious: Yes (Death, Hospitalization)
  Sender: FDA-Public Use
  Company Number: US-MERCK-0510USA02627

PATIENT
  Age: 38 Year
  Sex: Female
  Weight: 136 kg

DRUGS (1)
  1. VIOXX [Suspect]
     Indication: ARTHRITIS
     Route: 048
     Dates: start: 19990101, end: 20010729

REACTIONS (10)
  - ANAEMIA [None]
  - CARDIO-RESPIRATORY ARREST [None]
  - CHEST PAIN [None]
  - COR PULMONALE [None]
  - DIABETES MELLITUS [None]
  - HYPOPITUITARISM [None]
  - OBESITY [None]
  - PITUITARY TUMOUR [None]
  - RENAL FAILURE [None]
  - SLEEP APNOEA SYNDROME [None]
